FAERS Safety Report 5625193-X (Version None)
Quarter: 2008Q1

REPORT INFORMATION
  Report Type: 
  Country: None (occurrence: None)
  Receive Date: 20080207
  Receipt Date: 20080125
  Transmission Date: 20080703
  Serious: Yes (Other)
  Sender: FDA-Public Use
  Company Number: 2007337366

PATIENT
  Age: 47 Year
  Sex: Female

DRUGS (1)
  1. LISTERINE WHITENING QUICK DISSOLVING STRIPS [Suspect]
     Indication: DENTAL CARE
     Dosage: ONCE A DAY (ONLY 3 STRIPS WERE USED), ORAL
     Route: 048

REACTIONS (3)
  - DRUG EFFECT DECREASED [None]
  - STOMATITIS [None]
  - THERMAL BURN [None]
